FAERS Safety Report 7194105-2 (Version None)
Quarter: 2010Q4

REPORT INFORMATION
  Report Type: 
  Country: None (occurrence: None)
  Receive Date: 20101223
  Receipt Date: 20101005
  Transmission Date: 20110411
  Serious: No
  Sender: FDA-Public Use
  Company Number: US-AMGEN-TCS430557

PATIENT

DRUGS (11)
  1. ENBREL [Suspect]
     Indication: RHEUMATOID ARTHRITIS
     Dosage: 50 MG, QWK
     Route: 058
     Dates: start: 19990101
  2. METHOTREXATE [Concomitant]
     Dosage: UNK UNK, UNK
  3. ADALIMUMAB [Concomitant]
     Dosage: UNK UNK, UNK
     Dates: start: 20050101
  4. REMICADE [Concomitant]
  5. PANADEINE CO [Concomitant]
     Dosage: UNK UNK, UNK
  6. ERGOCALCIFEROL [Concomitant]
  7. FOLIC ACID [Concomitant]
  8. ATORVASTATIN CALCIUM [Concomitant]
  9. CLOPIDOGREL BISULFATE [Concomitant]
  10. LEVOTHYROXINE SODIUM [Concomitant]
  11. NIFEDIPINE [Concomitant]

REACTIONS (6)
  - DISCOMFORT [None]
  - PAIN [None]
  - RHEUMATOID ARTHRITIS [None]
  - SKIN ULCER [None]
  - STOMATITIS [None]
  - THERAPEUTIC RESPONSE DECREASED [None]
